FAERS Safety Report 18500430 (Version 1)
Quarter: 2020Q4

REPORT INFORMATION
  Report Type: Other
  Country: GB (occurrence: GB)
  Receive Date: 20201113
  Receipt Date: 20201113
  Transmission Date: 20210114
  Serious: Yes (Hospitalization)
  Sender: FDA-Public Use
  Company Number: GB-EMCURE PHARMACEUTICALS LTD-2020-EPL-001872

PATIENT
  Age: 64 Year
  Sex: Female
  Weight: 66.5 kg

DRUGS (3)
  1. LISINOPRIL. [Suspect]
     Active Substance: LISINOPRIL
     Indication: HYPERTENSION
     Dosage: 20 MILLIGRAM, QD (MORNING)
     Route: 048
     Dates: end: 20201015
  2. SIMVASTATIN. [Suspect]
     Active Substance: SIMVASTATIN
     Indication: PRODUCT USED FOR UNKNOWN INDICATION
     Route: 048
  3. NIFEDIPRESS MR [Concomitant]
     Dosage: UNK

REACTIONS (10)
  - Abnormal loss of weight [Unknown]
  - Abdominal distension [Unknown]
  - Flank pain [Unknown]
  - Chromaturia [Unknown]
  - Decreased appetite [Unknown]
  - Hepatitis fulminant [Not Recovered/Not Resolved]
  - Jaundice [Unknown]
  - Faeces pale [Unknown]
  - Pain in extremity [Unknown]
  - Peripheral swelling [Unknown]

NARRATIVE: CASE EVENT DATE: 202006
